FAERS Safety Report 7054604-0 (Version None)
Quarter: 2010Q4

REPORT INFORMATION
  Report Type: 
  Country: None (occurrence: None)
  Receive Date: 20101020
  Receipt Date: 20101014
  Transmission Date: 20110411
  Serious: Yes (Death)
  Sender: FDA-Public Use
  Company Number: US-GILEAD-2010-0032634

PATIENT
  Sex: Female

DRUGS (6)
  1. LETAIRIS [Suspect]
     Indication: PULMONARY ARTERIAL HYPERTENSION
     Route: 048
     Dates: start: 20090624
  2. REVATIO [Concomitant]
  3. HYDROCHLOROTHIAZIDE [Concomitant]
  4. DILTIAZEM [Concomitant]
  5. FLUTICASONE PROPIONATE [Concomitant]
  6. CALCIUM CARBONATE [Concomitant]

REACTIONS (2)
  - DEATH [None]
  - HOSPITALISATION [None]
